FAERS Safety Report 16459245 (Version 2)
Quarter: 2019Q3

REPORT INFORMATION
  Report Type: Report from Study
  Country: US (occurrence: US)
  Receive Date: 20190620
  Receipt Date: 20190702
  Transmission Date: 20191004
  Serious: Yes (Other)
  Sender: FDA-Public Use
  Company Number: US-GILEAD-2019-0413883

PATIENT
  Sex: Male
  Weight: 85.26 kg

DRUGS (9)
  1. RANOLAZINE. [Suspect]
     Active Substance: RANOLAZINE
     Indication: ANGINA PECTORIS
     Dosage: 1000 MG, QD
     Route: 048
  2. ATORVASTATIN CALCIUM. [Concomitant]
     Active Substance: ATORVASTATIN CALCIUM
  3. HYDRALAZINE HCL [Concomitant]
     Active Substance: HYDRALAZINE HYDROCHLORIDE
  4. ISOSORBIDE MONONITRATE. [Concomitant]
     Active Substance: ISOSORBIDE MONONITRATE
  5. RANOLAZINE. [Suspect]
     Active Substance: RANOLAZINE
     Dosage: 1000 MG, BID
     Route: 048
  6. JANTOVEN [Concomitant]
     Active Substance: WARFARIN SODIUM
  7. CLOPIDOGREL BISULFATE. [Concomitant]
     Active Substance: CLOPIDOGREL BISULFATE
  8. NITROSTAT [Concomitant]
     Active Substance: NITROGLYCERIN
  9. METOPROLOL TARTRATE. [Concomitant]
     Active Substance: METOPROLOL TARTRATE

REACTIONS (2)
  - Intentional product use issue [Not Recovered/Not Resolved]
  - Angina pectoris [Unknown]
